FAERS Safety Report 24883543 (Version 3)
Quarter: 2025Q4

REPORT INFORMATION
  Report Type: Other
  Country: US (occurrence: US)
  Receive Date: 20250124
  Receipt Date: 20251231
  Transmission Date: 20260117
  Serious: No
  Sender: TRAVERE THERAPEUTICS
  Company Number: US-TRAVERE-2025TVT00069

PATIENT
  Age: 65 Year
  Sex: Female

DRUGS (1)
  1. FILSPARI [Suspect]
     Active Substance: SPARSENTAN
     Indication: IgA nephropathy
     Dosage: EXPIRY DATE: 31-AUG-2027
     Route: 048
     Dates: start: 20241224

REACTIONS (6)
  - Fatigue [Unknown]
  - Dyspnoea [None]
  - Heart rate increased [Unknown]
  - Hypertension [Unknown]
  - Headache [Unknown]
  - Urine odour abnormal [Unknown]

NARRATIVE: CASE EVENT DATE: 20250101
